FAERS Safety Report 10035792 (Version 3)
Quarter: 2014Q3

REPORT INFORMATION
  Report Type: Spontaneous
  Country: SE (occurrence: SE)
  Receive Date: 20140325
  Receipt Date: 20140812
  Transmission Date: 20150326
  Serious: Yes (Other)
  Sender: FDA-Public Use
  Company Number: SE-GLAXOSMITHKLINE-B0979427A

PATIENT
  Sex: Female

DRUGS (1)
  1. SERETIDE [Suspect]
     Active Substance: FLUTICASONE FUROATE\SALMETEROL XINAFOATE
     Indication: ASTHMA
     Route: 065
     Dates: end: 20121017

REACTIONS (8)
  - Glaucoma [Unknown]
  - Weight increased [Unknown]
  - Muscular weakness [Unknown]
  - Depression [Unknown]
  - Lethargy [Unknown]
  - Musculoskeletal pain [Unknown]
  - Osteoporosis [Unknown]
  - Local reaction [Unknown]
